FAERS Safety Report 6659587-0 (Version None)
Quarter: 2010Q1

REPORT INFORMATION
  Report Type: 
  Country: None (occurrence: None)
  Receive Date: 20100330
  Receipt Date: 20100317
  Transmission Date: 20100710
  Serious: Yes (Death)
  Sender: FDA-Public Use
  Company Number: DE-GENENTECH-299758

PATIENT
  Sex: Female
  Weight: 70 kg

DRUGS (5)
  1. RITUXIMAB [Suspect]
     Indication: B-CELL LYMPHOMA
     Dosage: 656 MG, UNK
     Route: 042
     Dates: start: 20090513
  2. RITUXIMAB [Suspect]
     Dosage: 656 MG, UNK
     Route: 042
     Dates: start: 20090922
  3. MITOXANTRONE [Suspect]
     Indication: B-CELL LYMPHOMA
     Dosage: 28 MG, UNK
     Route: 042
     Dates: start: 20090922
  4. CHLORAMBUCIL [Suspect]
     Indication: B-CELL LYMPHOMA
     Dosage: 360 MG, UNK
     Route: 048
     Dates: start: 20090822
  5. PREDNISOLONE [Suspect]
     Indication: B-CELL LYMPHOMA
     Dosage: 225 MG, UNK
     Route: 048
     Dates: start: 20090922

REACTIONS (1)
  - NON-HODGKIN'S LYMPHOMA [None]
